FAERS Safety Report 10846645 (Version 1)
Quarter: 2015Q1

REPORT INFORMATION
  Report Type: Spontaneous
  Country: US (occurrence: US)
  Receive Date: 20150220
  Receipt Date: 20150220
  Transmission Date: 20150721
  Serious: Yes (Congenital Anomaly, Other)
  Sender: FDA-Public Use
  Company Number: US-APOTEX-2015AP006716

PATIENT
  Age: 1 Day

DRUGS (1)
  1. PAXIL [Suspect]
     Active Substance: PAROXETINE HYDROCHLORIDE
     Indication: PRODUCT USED FOR UNKNOWN INDICATION
     Route: 064

REACTIONS (7)
  - Atrial septal defect [Unknown]
  - Arrhythmia [Unknown]
  - Foetal exposure during pregnancy [Unknown]
  - Supraventricular extrasystoles [Unknown]
  - Tricuspid valve incompetence [Unknown]
  - Cardiac murmur [Unknown]
  - Congenital eye disorder [Unknown]

NARRATIVE: CASE EVENT DATE: 20021112
